FAERS Safety Report 6003050-7 (Version None)
Quarter: 2008Q4

REPORT INFORMATION
  Report Type: 
  Country: None (occurrence: None)
  Receive Date: 20081215
  Receipt Date: 20081209
  Transmission Date: 20090506
  Serious: Yes (Hospitalization)
  Sender: FDA-Public Use
  Company Number: US-PFIZER INC-2007101719

PATIENT
  Sex: Male
  Weight: 77 kg

DRUGS (20)
  1. BLINDED *PLACEBO [Suspect]
     Indication: OSTEOARTHRITIS
     Dosage: UNK
     Route: 048
     Dates: start: 20070919, end: 20071031
  2. CELECOXIB [Suspect]
     Indication: OSTEOARTHRITIS
     Dosage: UNK
     Route: 048
     Dates: start: 20070919, end: 20071031
  3. BLINDED IBUPROFEN [Suspect]
     Indication: OSTEOARTHRITIS
     Dosage: UNK
     Route: 048
     Dates: start: 20070919, end: 20071031
  4. BLINDED NAPROXEN [Suspect]
     Indication: OSTEOARTHRITIS
     Dosage: UNK
     Route: 048
     Dates: start: 20070919, end: 20071031
  5. BLINDED *PLACEBO [Suspect]
     Indication: RHEUMATOID ARTHRITIS
  6. CELECOXIB [Suspect]
     Indication: RHEUMATOID ARTHRITIS
  7. BLINDED IBUPROFEN [Suspect]
     Indication: RHEUMATOID ARTHRITIS
  8. BLINDED NAPROXEN [Suspect]
     Indication: RHEUMATOID ARTHRITIS
  9. NEXIUM [Concomitant]
     Dosage: QD
     Route: 048
     Dates: start: 20070919
  10. ACETYLSALICYLIC ACID [Concomitant]
     Dosage: QD
     Route: 048
     Dates: start: 20070401
  11. PLAVIX [Concomitant]
     Dosage: QD
     Route: 048
     Dates: start: 20070401
  12. SIMVASTATIN [Concomitant]
     Dosage: QD
     Route: 048
     Dates: start: 20060101
  13. UROXATRAL [Concomitant]
     Dosage: QD
     Route: 048
     Dates: start: 20050101
  14. PILOCARPINE HYDROCHLORIDE [Concomitant]
     Route: 047
     Dates: start: 20040101
  15. XALATAN [Concomitant]
     Dosage: 1 DROP,QD
     Route: 047
     Dates: start: 20040101
  16. COSOPT [Concomitant]
     Dosage: 1 DROP,QD
     Route: 047
     Dates: start: 20040101
  17. TRAMADOL HCL [Concomitant]
     Dosage: TID
     Route: 048
     Dates: start: 20060101
  18. ALL OTHER THERAPEUTIC PRODUCTS [Concomitant]
     Dosage: 2 TABS,QD
     Route: 048
     Dates: start: 20000101
  19. SENNA [Concomitant]
     Dosage: 2 TABS,QD
     Route: 048
     Dates: start: 20000101
  20. AMBIEN [Concomitant]
     Dosage: QD
     Route: 048
     Dates: start: 20000101

REACTIONS (2)
  - CEREBROVASCULAR ACCIDENT [None]
  - CONVULSION [None]
